FAERS Safety Report 10235671 (Version 1)
Quarter: 2014Q2

REPORT INFORMATION
  Report Type: Spontaneous
  Country: GB (occurrence: None)
  Receive Date: 20140611
  Receipt Date: 20140611
  Transmission Date: 20141212
  Serious: Yes (Disabling, Other)
  Sender: FDA-Public Use
  Company Number: FK201402212

PATIENT
  Age: 6 Decade
  Sex: Male

DRUGS (4)
  1. METHOTREXATE (MANUFACTURER UNKNOWN) (METHOTREXATE) (METHOTREXATE) [Suspect]
     Indication: RHEUMATOID ARTHRITIS
     Dosage: 1 IN 1 WK
     Route: 048
     Dates: start: 19950101, end: 20131101
  2. ASPIRIN (ACETYLSALICYLIC ACID) [Concomitant]
  3. NSAID^S (NSAID^S) [Concomitant]
  4. PROTON PUMP INHIBITORS (PROTON PUMP INHIBITORS) [Concomitant]

REACTIONS (4)
  - Hyperhomocysteinaemia [None]
  - Fatigue [None]
  - Depression [None]
  - Lethargy [None]
